FAERS Safety Report 6400553-8 (Version None)
Quarter: 2009Q4

REPORT INFORMATION
  Report Type: 
  Country: None (occurrence: None)
  Receive Date: 20091013
  Receipt Date: 20091013
  Transmission Date: 20100525
  Serious: Yes (Other)
  Sender: FDA-Public Use
  Company Number: None

PATIENT
  Age: 33 Year
  Sex: Female
  Weight: 64.8644 kg

DRUGS (1)
  1. PRISTIQ [Suspect]
     Indication: DEPRESSION
     Dosage: 50 MG ONCE A DAY PO
     Route: 048
     Dates: start: 20091009, end: 20091010

REACTIONS (3)
  - AFFECT LABILITY [None]
  - CRYING [None]
  - FEAR [None]
